FAERS Safety Report 5472779-1 (Version None)
Quarter: 2007Q4

REPORT INFORMATION
  Report Type: 
  Country: None (occurrence: None)
  Receive Date: 20071001
  Receipt Date: 20061107
  Transmission Date: 20080405
  Serious: No
  Sender: FDA-Public Use
  Company Number: US-ASTRAZENECA-2006UW21983

PATIENT
  Age: 75 Year
  Sex: Female
  Weight: 76.2 kg

DRUGS (4)
  1. ARIMIDEX [Suspect]
     Indication: BREAST CANCER FEMALE
     Route: 048
  2. VITAMINS [Concomitant]
  3. CALCIUM [Concomitant]
  4. EYE DROPS [Concomitant]
     Indication: GLAUCOMA

REACTIONS (1)
  - FAECES DISCOLOURED [None]
